FAERS Safety Report 9528926 (Version 2)
Quarter: 2014Q2

REPORT INFORMATION
  Report Type: Report from Study
  Country: DE (occurrence: DE)
  Receive Date: 20130917
  Receipt Date: 20140416
  Transmission Date: 20141212
  Serious: Yes (Hospitalization)
  Sender: FDA-Public Use
  Company Number: DE-ROCHE-1275648

PATIENT
  Age: 50 Year
  Sex: Female
  Weight: 62 kg

DRUGS (11)
  1. BEVACIZUMAB [Suspect]
     Indication: BREAST CANCER METASTATIC
     Route: 042
     Dates: start: 20130626
  2. BEVACIZUMAB [Suspect]
     Route: 042
     Dates: start: 20120320
  3. BEVACIZUMAB [Suspect]
     Route: 042
     Dates: start: 20130108
  4. TOREM [Concomitant]
     Indication: HYPERTENSION
     Route: 065
     Dates: start: 20130710
  5. DOXAZOSIN [Concomitant]
     Indication: HYPERTENSION
     Route: 065
     Dates: start: 20130710
  6. BISOPROLOL [Concomitant]
     Route: 065
     Dates: start: 20110615, end: 20121112
  7. VALSARTAN [Concomitant]
     Route: 065
     Dates: start: 20120328, end: 20121112
  8. CANDESARTAN [Concomitant]
     Route: 065
     Dates: start: 20121112
  9. CARBOPLATIN [Concomitant]
     Dosage: 2 AUC
     Route: 065
     Dates: start: 20120320
  10. PACLITAXEL [Concomitant]
     Route: 065
     Dates: start: 20120320
  11. PACLITAXEL [Concomitant]
     Route: 065

REACTIONS (2)
  - Hypertension [Recovered/Resolved]
  - Hyponatraemia [Recovered/Resolved]
